FAERS Safety Report 5531286-8 (Version None)
Quarter: 2007Q4

REPORT INFORMATION
  Report Type: 
  Country: None (occurrence: None)
  Receive Date: 20071120
  Receipt Date: 20071109
  Transmission Date: 20080405
  Serious: Yes (Hospitalization)
  Sender: FDA-Public Use
  Company Number: THYM-11595

PATIENT
  Age: 46 Year
  Sex: Male
  Weight: 78 kg

DRUGS (7)
  1. THYMOGLOBULIN [Suspect]
     Indication: KIDNEY TRANSPLANT REJECTION
     Dosage: 156 MG IV
     Route: 042
     Dates: start: 20070927, end: 20071001
  2. TACROLIMUS [Concomitant]
  3. PREDNISOLONE [Concomitant]
  4. ACYCLOVIR [Concomitant]
  5. CO-TRIMOXAZOLE. MFR: NOT SPECIFIED [Concomitant]
  6. MYFORTIC [Concomitant]
  7. NIFEDIPINE ^BAYER^. MFR: BAYER [Concomitant]

REACTIONS (4)
  - ARTHRITIS [None]
  - MYALGIA [None]
  - RASH [None]
  - SERUM SICKNESS [None]
